FAERS Safety Report 8645514 (Version 3)
Quarter: 2016Q3

REPORT INFORMATION
  Report Type: Spontaneous
  Country: BR (occurrence: BR)
  Receive Date: 20120702
  Receipt Date: 20160927
  Transmission Date: 20161109
  Serious: Yes (Hospitalization, Other)
  Sender: FDA-Public Use
  Company Number: BR-ASTRAZENECA-2012SE42528

PATIENT
  Age: 66 Year
  Sex: Female
  Weight: 74 kg

DRUGS (10)
  1. SEROQUEL [Suspect]
     Active Substance: QUETIAPINE FUMARATE
     Indication: DEPRESSION
     Route: 048
     Dates: start: 2008
  2. PLAVIX [Suspect]
     Active Substance: CLOPIDOGREL BISULFATE
     Route: 048
     Dates: start: 2008, end: 201012
  3. NORVASC [Concomitant]
     Active Substance: AMLODIPINE BESYLATE
     Dosage: 5.0MG UNKNOWN
     Route: 048
     Dates: start: 2008
  4. ETNA [Concomitant]
     Active Substance: UNSPECIFIED INGREDIENT
  5. VITAMIN D [Concomitant]
     Active Substance: CHOLECALCIFEROL
     Route: 048
     Dates: start: 2008
  6. ASPIRINA PREVENT [Concomitant]
     Active Substance: ASPIRIN
  7. OMEPRAZOLE. [Suspect]
     Active Substance: OMEPRAZOLE
     Dosage: DAILY
     Route: 048
     Dates: start: 2008
  8. CRESTOR [Suspect]
     Active Substance: ROSUVASTATIN CALCIUM
     Indication: BLOOD CHOLESTEROL INCREASED
     Route: 048
     Dates: start: 200811
  9. ENDOFOLIN [Concomitant]
     Active Substance: FOLIC ACID
     Route: 048
     Dates: start: 2008
  10. XARELTO [Concomitant]
     Active Substance: RIVAROXABAN
     Dosage: 20.0MG UNKNOWN

REACTIONS (6)
  - Fall [Unknown]
  - Aortic aneurysm [Recovered/Resolved]
  - Abdominal pain [Unknown]
  - Platelet count decreased [Recovered/Resolved]
  - Somnolence [Not Recovered/Not Resolved]
  - Off label use [Not Recovered/Not Resolved]

NARRATIVE: CASE EVENT DATE: 2008
